FAERS Safety Report 18570074 (Version 1)
Quarter: 2020Q4

REPORT INFORMATION
  Report Type: Spontaneous
  Country: ES (occurrence: ES)
  Receive Date: 20201202
  Receipt Date: 20201202
  Transmission Date: 20210114
  Serious: Yes (Hospitalization)
  Sender: FDA-Public Use
  Company Number: ES-PFIZER INC-2020474041

PATIENT
  Sex: Male

DRUGS (2)
  1. CAPECITABINE. [Concomitant]
     Active Substance: CAPECITABINE
     Dates: start: 202001
  2. OXALIPLATIN. [Suspect]
     Active Substance: OXALIPLATIN
     Dates: start: 202001, end: 2020

REACTIONS (1)
  - Pancytopenia [Recovered/Resolved with Sequelae]

NARRATIVE: CASE EVENT DATE: 202008
